FAERS Safety Report 8446565-4 (Version None)
Quarter: 2012Q2

REPORT INFORMATION
  Report Type: 
  Country: None (occurrence: None)
  Receive Date: 20120618
  Receipt Date: 20120613
  Transmission Date: 20120825
  Serious: Yes (Hospitalization, Other)
  Sender: FDA-Public Use
  Company Number: CA-ABBOTT-12P-028-0926421-00

PATIENT
  Sex: Female

DRUGS (1)
  1. HUMIRA [Suspect]
     Indication: CROHN'S DISEASE
     Route: 058
     Dates: start: 20090902

REACTIONS (6)
  - DYSURIA [None]
  - URINE ABNORMALITY [None]
  - ABDOMINAL PAIN LOWER [None]
  - CROHN'S DISEASE [None]
  - PUBIC PAIN [None]
  - HAEMORRHAGE [None]
